FAERS Safety Report 5565828-3 (Version None)
Quarter: 2007Q4

REPORT INFORMATION
  Report Type: 
  Country: None (occurrence: None)
  Receive Date: 20071213
  Receipt Date: 20071206
  Transmission Date: 20080405
  Serious: Yes (Hospitalization)
  Sender: FDA-Public Use
  Company Number: 028-C5013-07051045

PATIENT
  Age: 71 Year
  Sex: Male

DRUGS (6)
  1. CC-5013 (LENALIDOMIDE) (CAPSULES) [Suspect]
     Indication: MULTIPLE MYELOMA
     Dosage: 25 MG, DAILY X 21 DAYS, ORAL : 15 MG, ORAL
     Route: 048
     Dates: start: 20061221, end: 20070516
  2. CC-5013 (LENALIDOMIDE) (CAPSULES) [Suspect]
     Indication: MULTIPLE MYELOMA
     Dosage: 25 MG, DAILY X 21 DAYS, ORAL : 15 MG, ORAL
     Route: 048
     Dates: start: 20070607
  3. DEXAMETHASONE [Suspect]
     Indication: MULTIPLE MYELOMA
     Dosage: 40 MG, DAILY ON DAYS 1-4 OF 28-DAY CYCLE, ORAL
     Route: 048
     Dates: start: 20061221
  4. VALTREX (VALACICLOVIR HYDROCHLORIDE) (TABLETS) [Concomitant]
  5. METFORMIN (METFORMIN) (TABLETS) [Concomitant]
  6. PAMIDRONATE DISODIUM [Concomitant]

REACTIONS (6)
  - HAEMOGLOBIN DECREASED [None]
  - NEUTROPHIL COUNT DECREASED [None]
  - PARAINFLUENZAE VIRUS INFECTION [None]
  - PLATELET COUNT DECREASED [None]
  - PNEUMONIA [None]
  - WHITE BLOOD CELL COUNT DECREASED [None]
